FAERS Safety Report 6683606-9 (Version None)
Quarter: 2010Q2

REPORT INFORMATION
  Report Type: 
  Country: None (occurrence: None)
  Receive Date: 20100415
  Receipt Date: 20100407
  Transmission Date: 20101027
  Serious: Yes (Other)
  Sender: FDA-Public Use
  Company Number: CA-JNJFOC-20100402035

PATIENT
  Sex: Female

DRUGS (3)
  1. SIMPONI [Suspect]
     Indication: RHEUMATOID ARTHRITIS
     Route: 058
  2. ADVAIR DISKUS 100/50 [Concomitant]
     Route: 055
  3. VENTOLIN [Concomitant]
     Route: 055

REACTIONS (4)
  - CHEST DISCOMFORT [None]
  - MALAISE [None]
  - NASOPHARYNGITIS [None]
  - PRODUCTIVE COUGH [None]
